FAERS Safety Report 7413468-3 (Version None)
Quarter: 2011Q2

REPORT INFORMATION
  Report Type: 
  Country: None (occurrence: None)
  Receive Date: 20110413
  Receipt Date: 20110405
  Transmission Date: 20111010
  Serious: Yes (Other)
  Sender: FDA-Public Use
  Company Number: PHHY2011FR28344

PATIENT
  Age: 51 Year
  Sex: Male

DRUGS (7)
  1. METOPROLOL TARTRATE [Suspect]
     Dosage: 100 MG, UNK
  2. ACETYLSALICYLIC ACID SRT [Concomitant]
     Dosage: 325 MG, UNK
  3. LOPINAVIR/RITONAVIR [Interacting]
     Dosage: 400/100 MG
  4. LEVOTHYROXINE [Concomitant]
     Dosage: 75 MG, UNK
  5. ROSUVASTATIN [Concomitant]
     Dosage: 20 MG, UNK
  6. RAMIPRIL [Concomitant]
     Dosage: 5 MG, UNK
  7. LACIDIPINE [Interacting]
     Dosage: 2 MG, UNK

REACTIONS (5)
  - DRUG INTERACTION [None]
  - SYNCOPE [None]
  - HYPOTENSION [None]
  - BRADYCARDIA [None]
  - ATRIOVENTRICULAR BLOCK COMPLETE [None]
